FAERS Safety Report 7687115-X (Version None)
Quarter: 2011Q3

REPORT INFORMATION
  Report Type: 
  Country: None (occurrence: None)
  Receive Date: 20110816
  Receipt Date: 20110811
  Transmission Date: 20111222
  Serious: Yes (Life-Threatening, Other)
  Sender: FDA-Public Use
  Company Number: PHHY2010DE16278

PATIENT
  Sex: Female

DRUGS (3)
  1. ZOLEDRONOC ACID [Suspect]
     Indication: OSTEOPOROSIS
     Dosage: 5 MG ONCE YEARLY
     Route: 042
     Dates: start: 20100303, end: 20100303
  2. CALCIUM CARBONATE [Concomitant]
     Indication: OSTEOPOROSIS
     Dosage: 1000 MG,
  3. VITAMIN D [Concomitant]
     Indication: OSTEOPOROSIS
     Dosage: 800 OT (IE)

REACTIONS (3)
  - SYNCOPE [None]
  - CLAVICLE FRACTURE [None]
  - FALL [None]
